FAERS Safety Report 4406529-4 (Version None)
Quarter: 2004Q3

REPORT INFORMATION
  Report Type: 
  Country: None (occurrence: None)
  Receive Date: 20040723
  Receipt Date: 20040607
  Transmission Date: 20050211
  Serious: Yes (Hospitalization)
  Sender: FDA-Public Use
  Company Number: DK-ROCHE-370370

PATIENT
  Age: 40 Year
  Sex: Male

DRUGS (3)
  1. PEGASYS [Suspect]
     Indication: HEPATITIS C
     Dosage: FORMULATION: SYRINGES.
     Route: 058
     Dates: start: 20040119, end: 20040203
  2. PEGASYS [Suspect]
     Dosage: FORMULATION: SYRINGES.
     Route: 058
     Dates: start: 20040309, end: 20040505
  3. PHOS-EX [Concomitant]
     Indication: DRUG USE FOR UNKNOWN INDICATION
     Route: 048

REACTIONS (13)
  - ANAEMIA [None]
  - COLD SWEAT [None]
  - DUODENAL ULCER [None]
  - DUODENAL ULCER HAEMORRHAGE [None]
  - EMOTIONAL DISTRESS [None]
  - HAEMATURIA [None]
  - HAEMODIALYSIS [None]
  - HAEMORRHAGE [None]
  - HELICOBACTER INFECTION [None]
  - HYPERHIDROSIS [None]
  - PROSTATIC HAEMORRHAGE [None]
  - RECTAL HAEMORRHAGE [None]
  - RENAL HAEMORRHAGE [None]
